FAERS Safety Report 7535648-9 (Version None)
Quarter: 2011Q2

REPORT INFORMATION
  Report Type: 
  Country: None (occurrence: None)
  Receive Date: 20110609
  Receipt Date: 20110527
  Transmission Date: 20111010
  Serious: Yes (Other)
  Sender: FDA-Public Use
  Company Number: CA-JNJFOC-20110600690

PATIENT
  Sex: Female

DRUGS (4)
  1. REMICADE [Suspect]
     Indication: PSORIATIC ARTHROPATHY
     Route: 042
     Dates: start: 20110501
  2. SIMPONI [Suspect]
     Indication: PSORIATIC ARTHROPATHY
  3. REMICADE [Suspect]
     Indication: CROHN'S DISEASE
     Route: 042
     Dates: start: 20110501
  4. SIMPONI [Suspect]
     Indication: CROHN'S DISEASE

REACTIONS (1)
  - CONTUSION [None]
